FAERS Safety Report 5311329-7 (Version None)
Quarter: 2007Q2

REPORT INFORMATION
  Report Type: 
  Country: None (occurrence: None)
  Receive Date: 20070430
  Receipt Date: 20070419
  Transmission Date: 20071010
  Serious: Yes (Disabling, Other)
  Sender: FDA-Public Use
  Company Number: PHRM2007FR01325

PATIENT
  Age: 75 Year
  Sex: Male

DRUGS (4)
  1. VOLTAREN [Suspect]
     Indication: PAIN
     Dosage: 100 MG, QD
     Route: 048
     Dates: start: 20010101
  2. TRAMADOL HCL [Concomitant]
  3. SERESTA [Concomitant]
  4. ALLOPURINOL [Concomitant]

REACTIONS (6)
  - GAIT DISTURBANCE [None]
  - IMPAIRED HEALING [None]
  - INCISIONAL DRAINAGE [None]
  - INSOMNIA [None]
  - PAIN [None]
  - WOUND SECRETION [None]
